FAERS Safety Report 25625704 (Version 1)
Quarter: 2025Q3

REPORT INFORMATION
  Report Type: Spontaneous
  Country: GB (occurrence: GB)
  Receive Date: 20250731
  Receipt Date: 20250731
  Transmission Date: 20251020
  Serious: Yes (Other)
  Sender: AUROBINDO
  Company Number: GB-MHRA-MED-202507211740416450-FWGMR

PATIENT
  Sex: Male

DRUGS (1)
  1. DIMETHYL FUMARATE [Suspect]
     Active Substance: DIMETHYL FUMARATE
     Indication: Multiple sclerosis
     Dosage: 240 MILLIGRAM, TWO TIMES A DAY (240MG TWICE DAILY)
     Route: 065
     Dates: end: 20250719

REACTIONS (3)
  - Renal pain [Unknown]
  - Vision blurred [Unknown]
  - Pain [Unknown]

NARRATIVE: CASE EVENT DATE: 20250719
